FAERS Safety Report 22005845 (Version 1)
Quarter: 2023Q1

REPORT INFORMATION
  Report Type: Spontaneous
  Country: US (occurrence: None)
  Receive Date: 20230216
  Receipt Date: 20230216
  Transmission Date: 20230418
  Serious: Yes (Other)
  Sender: FDA-Public Use
  Company Number: None

PATIENT
  Age: 45 Year
  Sex: Female
  Weight: 88.45 kg

DRUGS (7)
  1. QULIPTA [Suspect]
     Active Substance: ATOGEPANT
     Dosage: FREQUENCY : DAILY;?
     Route: 048
     Dates: start: 20220824
  2. LISINOPRIL [Concomitant]
     Active Substance: LISINOPRIL
  3. TOPAMAX [Concomitant]
     Active Substance: TOPIRAMATE
  4. TRAMADOL [Concomitant]
     Active Substance: TRAMADOL
  5. TRAZODONE [Concomitant]
     Active Substance: TRAZODONE HYDROCHLORIDE
  6. VENLAFAXINE [Concomitant]
     Active Substance: VENLAFAXINE HYDROCHLORIDE
  7. LAMOTRIGINE [Concomitant]
     Active Substance: LAMOTRIGINE

REACTIONS (1)
  - Nausea [None]

NARRATIVE: CASE EVENT DATE: 20230131
